FAERS Safety Report 4312852-4 (Version None)
Quarter: 2004Q1

REPORT INFORMATION
  Report Type: 
  Country: None (occurrence: None)
  Receive Date: 20040304
  Receipt Date: 20040224
  Transmission Date: 20041129
  Serious: Yes (Hospitalization, Other)
  Sender: FDA-Public Use
  Company Number: 2002-03-0474

PATIENT
  Age: 61 Year
  Sex: Male
  Weight: 80 kg

DRUGS (18)
  1. REBETOL [Suspect]
     Indication: HEPATITIS C
     Dosage: 0.8-0.6 G QD ORAL SEE IMAGE
     Route: 048
     Dates: start: 20020117, end: 20020322
  2. REBETOL [Suspect]
     Indication: HEPATITIS C
     Dosage: 0.8-0.6 G QD ORAL SEE IMAGE
     Route: 048
     Dates: start: 20020117, end: 20020703
  3. REBETOL [Suspect]
     Indication: HEPATITIS C
     Dosage: 0.8-0.6 G QD ORAL SEE IMAGE
     Route: 048
     Dates: start: 20020515, end: 20020703
  4. REBETOL [Suspect]
     Indication: HEPATITIS C
     Dosage: 0.8-0.6 G QD ORAL SEE IMAGE
     Route: 048
     Dates: start: 20020323
  5. INTRON A [Suspect]
     Indication: HEPATITIS C
     Dosage: 10 MU QD-TIW* INTRAMUSCU SEE IMAGE
     Route: 030
     Dates: start: 20020117, end: 20020130
  6. INTRON A [Suspect]
     Indication: HEPATITIS C
     Dosage: 10 MU QD-TIW* INTRAMUSCU SEE IMAGE
     Route: 030
     Dates: start: 20020117, end: 20020703
  7. INTRON A [Suspect]
     Indication: HEPATITIS C
     Dosage: 10 MU QD-TIW* INTRAMUSCU SEE IMAGE
     Route: 030
     Dates: start: 20020201, end: 20020703
  8. LOXOPROFEN SODIUM TABLETS [Suspect]
     Indication: PROPHYLAXIS
     Dosage: 3 TAB QD ORAL SEE IMAGE
     Route: 048
     Dates: start: 20020117, end: 20020501
  9. LOXOPROFEN SODIUM TABLETS [Suspect]
     Indication: PROPHYLAXIS
     Dosage: 3 TAB QD ORAL SEE IMAGE
     Route: 048
     Dates: start: 20020514
  10. PROHEPARUM [Concomitant]
  11. URSODEOXYCHOLIC ACID [Concomitant]
  12. SUCRALFATE [Concomitant]
  13. SEVEN-E [Concomitant]
  14. TAVEGIL [Concomitant]
  15. BROTIZOLAM [Concomitant]
  16. SULPIRIDE [Concomitant]
  17. ESTAZOLAM [Concomitant]
  18. STREPTORAL [Concomitant]

REACTIONS (12)
  - ALANINE AMINOTRANSFERASE INCREASED [None]
  - ALOPECIA [None]
  - ANOREXIA [None]
  - ASPARTATE AMINOTRANSFERASE INCREASED [None]
  - DEPRESSION [None]
  - LIVER DISORDER [None]
  - NAUSEA [None]
  - PLATELET COUNT DECREASED [None]
  - STOMACH DISCOMFORT [None]
  - VOMITING [None]
  - WEIGHT DECREASED [None]
  - WHITE BLOOD CELL COUNT DECREASED [None]
